FAERS Safety Report 18360913 (Version 11)
Quarter: 2021Q3

REPORT INFORMATION
  Report Type: Spontaneous
  Country: PT (occurrence: PT)
  Receive Date: 20201008
  Receipt Date: 20210720
  Transmission Date: 20211014
  Serious: Yes (Hospitalization, Disabling, Other)
  Sender: FDA-Public Use
  Company Number: NVSC2020PT271002

PATIENT
  Age: 65 Year
  Sex: Male

DRUGS (5)
  1. AMOXICILLIN, CLAVULANIC ACID [Suspect]
     Active Substance: AMOXICILLIN\CLAVULANIC ACID
     Dosage: UNK, CYCLIC
     Route: 065
  2. NOLOTIL [Concomitant]
     Indication: PRODUCT USED FOR UNKNOWN INDICATION
     Dosage: UNK
     Route: 065
     Dates: start: 2019
  3. DAFALGAN [Concomitant]
     Active Substance: ACETAMINOPHEN
     Indication: PRODUCT USED FOR UNKNOWN INDICATION
     Dosage: UNK
     Route: 065
     Dates: start: 2019
  4. AMOXICILLIN, CLAVULANIC ACID [Suspect]
     Active Substance: AMOXICILLIN\CLAVULANIC ACID
     Dosage: UNK
     Route: 065
  5. AMOXICILLIN, CLAVULANIC ACID [Suspect]
     Active Substance: AMOXICILLIN\CLAVULANIC ACID
     Indication: TONSILLITIS
     Dosage: 1 DOSAGE FORM (1 DOSAGE FORM= 875 MG AMOXICILIN WITH 125 CLAVULANIC ACID)
     Route: 048
     Dates: start: 20190521, end: 20190529

REACTIONS (18)
  - Off label use [Unknown]
  - Hepatitis [Unknown]
  - Autoimmune hepatitis [Recovered/Resolved]
  - Abdominal discomfort [Recovered/Resolved]
  - Cholestasis [Unknown]
  - Hepatitis cholestatic [Recovered/Resolved]
  - Hyperbilirubinaemia [Unknown]
  - Drug-induced liver injury [Recovered/Resolved]
  - Jaundice [Recovered/Resolved]
  - Jaundice cholestatic [Recovered/Resolved]
  - Biliary tract disorder [Unknown]
  - Decreased appetite [Unknown]
  - Deficiency of bile secretion [Recovered/Resolved]
  - Abdominal pain [Unknown]
  - Faeces pale [Unknown]
  - Pruritus [Recovered/Resolved]
  - Choluria [Unknown]
  - Hepatic enzyme increased [Recovering/Resolving]

NARRATIVE: CASE EVENT DATE: 20190612
